FAERS Safety Report 19965822 (Version 2)
Quarter: 2021Q4

REPORT INFORMATION
  Report Type: Spontaneous
  Country: US (occurrence: US)
  Receive Date: 20211018
  Receipt Date: 20211105
  Transmission Date: 20220303
  Serious: No
  Sender: FDA-Public Use
  Company Number: US-SUNOVION-2021SUN003865

PATIENT

DRUGS (3)
  1. XOPENEX [Suspect]
     Active Substance: LEVALBUTEROL HYDROCHLORIDE
     Dosage: UNK
     Route: 055
  2. XOPENEX [Suspect]
     Active Substance: LEVALBUTEROL HYDROCHLORIDE
     Dosage: UNK
     Route: 055
  3. POTASSIUM [Concomitant]
     Active Substance: POTASSIUM

REACTIONS (3)
  - Malaise [Unknown]
  - Dizziness [Unknown]
  - Product taste abnormal [Unknown]
